FAERS Safety Report 20747027 (Version 1)
Quarter: 2022Q2

REPORT INFORMATION
  Report Type: Report from Study
  Country: US (occurrence: US)
  Receive Date: 20220425
  Receipt Date: 20220425
  Transmission Date: 20220721
  Serious: Yes (Other)
  Sender: FDA-Public Use
  Company Number: US-JAZZ-2022-US-013412

PATIENT
  Sex: Female

DRUGS (7)
  1. XYREM [Suspect]
     Active Substance: SODIUM OXYBATE
     Indication: Narcolepsy
     Dosage: 3.5 GRAM, BID
     Dates: start: 202003
  2. PRISTIQ EXTENDED-RELEASE [Suspect]
     Active Substance: DESVENLAFAXINE SUCCINATE
     Indication: Product used for unknown indication
  3. WELLBUTRIN XL [Concomitant]
     Active Substance: BUPROPION HYDROCHLORIDE
     Dosage: 0000
     Dates: start: 20220421
  4. CLOBETASOL [Concomitant]
     Active Substance: CLOBETASOL
     Dosage: 0000
     Dates: start: 20211201
  5. CALCIPOTRIENE [Concomitant]
     Active Substance: CALCIPOTRIENE
     Dosage: 0000
     Dates: start: 20201201
  6. METHOTREXATE [Concomitant]
     Active Substance: METHOTREXATE
     Dosage: 0000
     Dates: start: 20220101
  7. FOLIC ACID [Concomitant]
     Active Substance: FOLIC ACID
     Dosage: 0000
     Dates: start: 20220101

REACTIONS (6)
  - Psoriatic arthropathy [Unknown]
  - Nasal disorder [Unknown]
  - Psoriasis [Unknown]
  - Peripheral swelling [Unknown]
  - Dehydration [Unknown]
  - Drug hypersensitivity [Unknown]
